FAERS Safety Report 8481733-7 (Version None)
Quarter: 2012Q3

REPORT INFORMATION
  Report Type: 
  Country: None (occurrence: None)
  Receive Date: 20120702
  Receipt Date: 20120622
  Transmission Date: 20120928
  Serious: Yes (Hospitalization)
  Sender: FDA-Public Use
  Company Number: US-BAYER-2012-017466

PATIENT
  Age: 32 Year
  Sex: Female
  Weight: 56.689 kg

DRUGS (11)
  1. YAZ [Suspect]
     Indication: ACNE
     Dosage: UNK
     Route: 048
     Dates: start: 20070301, end: 20100601
  2. SERTRALINE HYDROCHLORIDE [Concomitant]
     Indication: ANXIETY
     Dosage: UNK
     Dates: start: 20070801
  3. DROSPIRENONE AND ETHINYL ESTRADIOL [Suspect]
     Indication: PREMENSTRUAL SYNDROME
  4. NORCO [Concomitant]
  5. SPIRONOLACTONE [Concomitant]
     Indication: ACNE CYSTIC
  6. ZOLOFT [Concomitant]
  7. CEPHALEXIN [Concomitant]
     Indication: ARTHROPOD BITE
     Dosage: UNK
     Dates: start: 20100701
  8. DROSPIRENONE AND ETHINYL ESTRADIOL [Suspect]
     Indication: ACNE
     Dosage: UNK
     Dates: start: 20100621, end: 20100820
  9. YAZ [Suspect]
     Indication: PREMENSTRUAL SYNDROME
  10. CEPHALEXIN [Concomitant]
     Indication: RHINITIS
  11. SPIRONOLACTONE [Concomitant]
     Indication: ACNE
     Dosage: UNK
     Dates: start: 20070801

REACTIONS (12)
  - ANXIETY [None]
  - PAIN IN EXTREMITY [None]
  - GENERAL PHYSICAL HEALTH DETERIORATION [None]
  - AXILLARY VEIN THROMBOSIS [None]
  - EMOTIONAL DISTRESS [None]
  - PAIN [None]
  - OEDEMA PERIPHERAL [None]
  - INJURY [None]
  - VENA CAVA THROMBOSIS [None]
  - SUBCLAVIAN VEIN THROMBOSIS [None]
  - MENTAL DISORDER [None]
  - DYSPNOEA [None]
